FAERS Safety Report 7254211-0 (Version None)
Quarter: 2011Q1

REPORT INFORMATION
  Report Type: 
  Country: None (occurrence: None)
  Receive Date: 20110129
  Receipt Date: 20100104
  Transmission Date: 20110831
  Serious: No
  Sender: FDA-Public Use
  Company Number: US-ABBOTT-10P-163-0617610-00

PATIENT
  Sex: Female
  Weight: 74.91 kg

DRUGS (2)
  1. HUMIRA [Suspect]
     Indication: OPEN WOUND
     Route: 058
  2. HUMIRA [Suspect]
     Indication: HIDRADENITIS
     Route: 058

REACTIONS (3)
  - PYREXIA [None]
  - EAR PAIN [None]
  - DRUG INEFFECTIVE [None]
